FAERS Safety Report 7020211-9 (Version None)
Quarter: 2010Q3

REPORT INFORMATION
  Report Type: 
  Country: None (occurrence: None)
  Receive Date: 20100929
  Receipt Date: 20100917
  Transmission Date: 20110219
  Serious: Yes (Hospitalization, Other)
  Sender: FDA-Public Use
  Company Number: PHHY2010JP30789

PATIENT
  Sex: Male
  Weight: 59 kg

DRUGS (11)
  1. DIOVAN [Suspect]
     Indication: HYPERTENSION
     Dosage: 80 MG
     Route: 048
     Dates: start: 20071114
  2. FRANDOL [Concomitant]
     Dosage: 40 MG
     Route: 048
     Dates: start: 19940101
  3. SIGMART [Concomitant]
     Dosage: 10 MG
     Route: 048
     Dates: start: 19940101
  4. BEZATOL - SR [Concomitant]
     Dosage: 200 MG
     Route: 048
     Dates: end: 20090401
  5. LIPITOR [Concomitant]
     Dosage: 10 MG
     Route: 048
  6. TAKEPRON [Concomitant]
     Dosage: 15 MG
     Route: 048
     Dates: start: 20060301
  7. ASPIRIN [Concomitant]
     Dosage: 100 MG
     Route: 048
     Dates: start: 19940101
  8. AMARYL [Concomitant]
     Dosage: 1MG
     Route: 048
     Dates: start: 20030501
  9. BASEN OD [Concomitant]
     Dosage: 0.9 MG
     Route: 048
     Dates: start: 20060301
  10. ZETIA [Concomitant]
     Dosage: 10 MG
     Route: 048
     Dates: start: 20090401, end: 20090916
  11. ACTOS [Concomitant]
     Dosage: 15 MG
     Route: 048
     Dates: start: 20090722

REACTIONS (3)
  - BLOOD PRESSURE DIASTOLIC DECREASED [None]
  - PROSTATE CANCER [None]
  - RADICAL PROSTATECTOMY [None]
